FAERS Safety Report 10230538 (Version 1)
Quarter: 2014Q2

REPORT INFORMATION
  Report Type: Spontaneous
  Country: US (occurrence: US)
  Receive Date: 20140611
  Receipt Date: 20140611
  Transmission Date: 20141212
  Serious: No
  Sender: FDA-Public Use
  Company Number: US-INCYTE CORPORATION-2014IN001111

PATIENT
  Sex: Male

DRUGS (8)
  1. JAKAFI [Suspect]
     Dosage: 15 MG, QD
     Route: 048
     Dates: start: 20130227
  2. JAKAFI [Suspect]
     Dosage: 10 MG, BID
     Route: 048
  3. POLYMYXIN B SULFATE W/TRIMETHOPRIM SULFATE [Concomitant]
  4. VANCOMYCIN [Concomitant]
  5. PREDNISOLONE ACETATE [Concomitant]
  6. ALPHAGAN P [Concomitant]
  7. ANAGRELIDE HCL [Concomitant]
  8. PREDNISONE [Concomitant]

REACTIONS (1)
  - Abdominal discomfort [Unknown]
